FAERS Safety Report 20174310 (Version 2)
Quarter: 2021Q4

REPORT INFORMATION
  Report Type: Spontaneous
  Country: US (occurrence: US)
  Receive Date: 20211213
  Receipt Date: 20211217
  Transmission Date: 20220304
  Serious: Yes (Other)
  Sender: FDA-Public Use
  Company Number: US-drreddys-LIT/USA/21/0144645

PATIENT
  Age: 15 Year
  Sex: Male

DRUGS (6)
  1. DOXORUBICIN HYDROCHLORIDE [Suspect]
     Active Substance: DOXORUBICIN HYDROCHLORIDE
     Indication: Hodgkin^s disease
     Dosage: PRIOR CUMULATIVE DOSE OF DOXORUBICIN WAS 200 MG/M2, CUMULATIVE DOSE OF DOXORUBICIN REACHED 350 MG/M2
  2. DOXORUBICIN HYDROCHLORIDE [Suspect]
     Active Substance: DOXORUBICIN HYDROCHLORIDE
     Indication: Osteosarcoma
  3. CYCLOPHOSPHAMIDE [Suspect]
     Active Substance: CYCLOPHOSPHAMIDE
     Indication: Hodgkin^s disease
  4. IFOSFAMIDE [Suspect]
     Active Substance: IFOSFAMIDE
     Indication: Hodgkin^s disease
  5. METHOTREXATE [Suspect]
     Active Substance: METHOTREXATE
     Indication: Osteosarcoma
     Dosage: 12 G/M2
  6. CISPLATIN [Suspect]
     Active Substance: CISPLATIN
     Indication: Osteosarcoma

REACTIONS (3)
  - Osteosarcoma [Unknown]
  - Nephropathy toxic [Recovering/Resolving]
  - Cardiotoxicity [Recovering/Resolving]
